FAERS Safety Report 17703579 (Version 2)
Quarter: 2020Q3

REPORT INFORMATION
  Report Type: Spontaneous
  Country: DE (occurrence: DE)
  Receive Date: 20200424
  Receipt Date: 20200713
  Transmission Date: 20201102
  Serious: Yes (Hospitalization, Other)
  Sender: FDA-Public Use
  Company Number: NVSC2020DE107807

PATIENT
  Age: 55 Year
  Sex: Female

DRUGS (34)
  1. PEMETREXED DISODIUM [Suspect]
     Active Substance: PEMETREXED DISODIUM
     Indication: NON-SMALL CELL LUNG CANCER STAGE IV
     Dosage: 500 MG/M2, Q3W (METEREVERY 3 WEEKS ;SECOND?LINE THERAPY, FIRST CYCLE)
     Route: 065
     Dates: start: 20190502, end: 20190725
  2. KEYTRUDA [Suspect]
     Active Substance: PEMBROLIZUMAB
     Dosage: 200 MG, Q3W (FIFTH CYCLE)
     Route: 065
     Dates: start: 20190725, end: 20190725
  3. NINTEDANIB [Suspect]
     Active Substance: NINTEDANIB
     Dosage: 100 MG (TWO, TWICE DAILY ORAL FROM DAY 2 UNTIL DAY 21, EVERY 3 WEEKS, FIRST CYCLE)
     Route: 048
     Dates: start: 20190912, end: 20190912
  4. DOCETAXEL. [Suspect]
     Active Substance: DOCETAXEL
     Indication: NON-SMALL CELL LUNG CANCER METASTATIC
     Dosage: 75 MG/M2, Q3W (D1, SECOND CYCLE)
     Route: 065
     Dates: start: 20191007, end: 20191007
  5. DOCETAXEL. [Suspect]
     Active Substance: DOCETAXEL
     Dosage: UNK (7?9TH CYCLE)
     Route: 065
     Dates: start: 20200123, end: 20200305
  6. DOCETAXEL. [Suspect]
     Active Substance: DOCETAXEL
     Dosage: UNK (10?12TH CYCLE)
     Route: 065
     Dates: start: 20200326, end: 20200507
  7. CARBOPLATIN. [Suspect]
     Active Substance: CARBOPLATIN
     Dosage: UNK UNK, Q3W (FIRST?LINE THERAPY, AUC5, ON DAY 1, FORTH CYCLE)
     Route: 065
     Dates: start: 20190704, end: 20190704
  8. KEYTRUDA [Suspect]
     Active Substance: PEMBROLIZUMAB
     Dosage: 200 MG, Q3W (SIXTH CYCLE)
     Route: 065
     Dates: start: 20190822, end: 20190822
  9. KEYTRUDA [Suspect]
     Active Substance: PEMBROLIZUMAB
     Dosage: 200 MG, Q3W (THIRD CYCLE)
     Route: 065
     Dates: start: 20190613, end: 20190613
  10. NINTEDANIB [Suspect]
     Active Substance: NINTEDANIB
     Dosage: 100 MG (TWICE DAILY FROM DAY 2 UNTIL DAY 21, EVERY 3 WEEKS, THIRD CYCLE)
     Route: 048
     Dates: start: 20191028, end: 20191028
  11. CARBOPLATIN. [Suspect]
     Active Substance: CARBOPLATIN
     Indication: NON-SMALL CELL LUNG CANCER METASTATIC
     Dosage: UNK UNK, Q3W (FIRST?LINE THERAPY, AUC5, ON DAY 1, FIRST CYCLE)
     Route: 065
     Dates: start: 20190502, end: 20190502
  12. CARBOPLATIN. [Suspect]
     Active Substance: CARBOPLATIN
     Dosage: UNK UNK, Q3W (FIRST?LINE THERAPY, AUC5, ON DAY 1, EVERY 3 WEEKS, SIXTH CYCLE)
     Route: 065
     Dates: start: 20190822, end: 20190822
  13. NINTEDANIB [Suspect]
     Active Substance: NINTEDANIB
     Dosage: UNK (10?12TH CYCLE)
     Route: 065
     Dates: start: 20200326, end: 20200507
  14. DOCETAXEL. [Suspect]
     Active Substance: DOCETAXEL
     Indication: NON-SMALL CELL LUNG CANCER STAGE IV
     Dosage: 75 MG/M2, Q3W (D1, FIRST CYCLE)
     Route: 065
     Dates: start: 20190912, end: 20190912
  15. DOCETAXEL. [Suspect]
     Active Substance: DOCETAXEL
     Dosage: UNK (4?6TH CYCLE)
     Route: 065
     Dates: start: 20191119, end: 20200102
  16. PEMETREXED DISODIUM [Suspect]
     Active Substance: PEMETREXED DISODIUM
     Dosage: 500 MG/M2, Q3W (METER, SECOND?LINE THERAPY, THIRD CYCLE)
     Route: 065
     Dates: start: 20190613, end: 20190613
  17. NINTEDANIB [Suspect]
     Active Substance: NINTEDANIB
     Dosage: UNK (100MG, TWO, TWICE DAILY ORAL FROM DAY 2 UNTIL DAY 21, EVERY 3 WEEKS, SECOND CYCLE)
     Route: 048
     Dates: start: 20191007, end: 20191007
  18. NINTEDANIB [Suspect]
     Active Substance: NINTEDANIB
     Dosage: UNK (4?6TH CYCLE)
     Route: 065
     Dates: start: 20191119, end: 20200102
  19. CARBOPLATIN. [Suspect]
     Active Substance: CARBOPLATIN
     Dosage: UNK UNK, Q3W (FIRST?LINE THERAPY, AUC5, ON DAY 1, EVERY 3 WEEKS, FIFTH CYCLE)
     Route: 065
     Dates: start: 20190725, end: 20190725
  20. NINTEDANIB [Suspect]
     Active Substance: NINTEDANIB
     Dosage: UNK (7?9TH CYCLE)
     Route: 065
     Dates: start: 20200123, end: 20200305
  21. NINTEDANIB [Suspect]
     Active Substance: NINTEDANIB
     Dosage: UNK (13TH CYCLE)
     Route: 065
     Dates: start: 20200526, end: 20200526
  22. DOCETAXEL. [Suspect]
     Active Substance: DOCETAXEL
     Dosage: UNK (13TH CYCLE)
     Route: 065
     Dates: start: 20200526, end: 20200526
  23. PEMETREXED DISODIUM [Suspect]
     Active Substance: PEMETREXED DISODIUM
     Dosage: 500 MG/M2, Q3W ( METEREVERY 3 WEEKS, 2 CYCLES, SECOND?LINE THERAP; FIFTH CYCLE)
     Route: 065
     Dates: start: 20190725, end: 20190725
  24. KEYTRUDA [Suspect]
     Active Substance: PEMBROLIZUMAB
     Indication: NON-SMALL CELL LUNG CANCER METASTATIC
     Dosage: 200 MG, Q3W (FIRST CYCLE)
     Route: 065
     Dates: start: 20190502, end: 20190502
  25. KEYTRUDA [Suspect]
     Active Substance: PEMBROLIZUMAB
     Dosage: 200 MG, Q3W (FORTH CYCLE)
     Route: 065
     Dates: start: 20190704, end: 20190704
  26. NINTEDANIB [Suspect]
     Active Substance: NINTEDANIB
     Indication: NON-SMALL CELL LUNG CANCER METASTATIC
     Dosage: 1 OT, Q3W (100MG 2X2 D1?D21, Q3W)
     Route: 048
     Dates: start: 20190912
  27. DOCETAXEL. [Suspect]
     Active Substance: DOCETAXEL
     Dosage: 75 MG/M2, Q3W (D1, THIRD CYCLE)
     Route: 065
     Dates: start: 20191028, end: 20191028
  28. PEMETREXED DISODIUM [Suspect]
     Active Substance: PEMETREXED DISODIUM
     Indication: NON-SMALL CELL LUNG CANCER METASTATIC
     Dosage: 500 MG/M2, Q3W (METEREVERY 3 WEEKS, SECOND?LINE THERAPY, SECOND CYCLE)
     Route: 065
     Dates: start: 20190523, end: 20190523
  29. PEMETREXED DISODIUM [Suspect]
     Active Substance: PEMETREXED DISODIUM
     Dosage: 500 MG/M2, Q3W (METEREVERY 3 WEEKS, 2 CYCLES, SECOND?LINE THERAPY, FORTH CYCLE)
     Route: 065
     Dates: start: 20190704, end: 20190704
  30. PEMETREXED DISODIUM [Suspect]
     Active Substance: PEMETREXED DISODIUM
     Dosage: 500 MG/M2, Q3W (METEREVERY 3 WEEKS ;2 CYCLES, SECOND?LINE THERAPY, SIXTH CYCLE)
     Route: 065
     Dates: start: 20190822, end: 20190822
  31. CARBOPLATIN. [Suspect]
     Active Substance: CARBOPLATIN
     Dosage: UNK UNK, Q3W (FIRST?LINE THERAPY, AUC5, ON DAY 1, THIRD CYCLE)
     Route: 065
     Dates: start: 20190613, end: 20190613
  32. CARBOPLATIN. [Suspect]
     Active Substance: CARBOPLATIN
     Dosage: UNK UNK, Q3W (FIRST?LINE THERAPY, AUC5, ON DAY 1, SECOND CYCLE)
     Route: 065
     Dates: start: 20190523, end: 20190523
  33. KEYTRUDA [Suspect]
     Active Substance: PEMBROLIZUMAB
     Indication: NON-SMALL CELL LUNG CANCER STAGE IV
     Dosage: 600 UNK
     Route: 065
  34. KEYTRUDA [Suspect]
     Active Substance: PEMBROLIZUMAB
     Dosage: 200 MG, Q3W (SECOND CYCLE)
     Route: 065
     Dates: start: 20190523, end: 20190523

REACTIONS (8)
  - Febrile neutropenia [Unknown]
  - Malignant neoplasm progression [Unknown]
  - Neuropathy peripheral [Unknown]
  - Pneumonitis [Unknown]
  - Inappropriate schedule of product administration [Unknown]
  - Venous thrombosis [Recovering/Resolving]
  - Nausea [Unknown]
  - Diarrhoea [Unknown]

NARRATIVE: CASE EVENT DATE: 20190627
